FAERS Safety Report 6862551-X (Version None)
Quarter: 2010Q3

REPORT INFORMATION
  Report Type: 
  Country: None (occurrence: None)
  Receive Date: 20100719
  Receipt Date: 20100712
  Transmission Date: 20110219
  Serious: Yes (Hospitalization)
  Sender: FDA-Public Use
  Company Number: 2010SP037700

PATIENT
  Age: 55 Year
  Sex: Male
  Weight: 85 kg

DRUGS (9)
  1. PEG-INTRON [Suspect]
     Indication: HEPATITIS C
     Dosage: SC
     Route: 058
     Dates: start: 20070829, end: 20100507
  2. URSO 250 [Concomitant]
  3. EPL [Concomitant]
  4. BEZATOL SR [Concomitant]
  5. AMLODIPINE [Concomitant]
  6. ASPIRIN [Concomitant]
  7. CADEMESIN [Concomitant]
  8. ANTEBATE [Concomitant]
  9. ZYLORIC [Concomitant]

REACTIONS (1)
  - PITUITARY TUMOUR BENIGN [None]
